FAERS Safety Report 24549758 (Version 3)
Quarter: 2024Q4

REPORT INFORMATION
  Report Type: Spontaneous
  Country: US (occurrence: US)
  Receive Date: 20241025
  Receipt Date: 20241113
  Transmission Date: 20250114
  Serious: Yes (Other)
  Sender: ORGANON
  Company Number: US-ORGANON-O2410USA001817

PATIENT
  Age: 19 Year
  Sex: Female
  Weight: 142.86 kg

DRUGS (3)
  1. NEXPLANON [Suspect]
     Active Substance: ETONOGESTREL
     Indication: Contraception
     Dosage: 1 IMPLANT,68 MG, IN RIGHT UPPER ARM, EVERY 3 YEARS
     Route: 059
     Dates: start: 20241004, end: 20241004
  2. NEXPLANON [Suspect]
     Active Substance: ETONOGESTREL
     Indication: Menstruation irregular
  3. FERROUS SULFATE [Concomitant]
     Active Substance: FERROUS SULFATE
     Dosage: UNK

REACTIONS (3)
  - Device expulsion [Recovered/Resolved]
  - Implant site pain [Recovered/Resolved]
  - Product use in unapproved indication [Unknown]

NARRATIVE: CASE EVENT DATE: 20241004
